FAERS Safety Report 14926988 (Version 2)
Quarter: 2018Q4

REPORT INFORMATION
  Report Type: Spontaneous
  Country: FR (occurrence: FR)
  Receive Date: 20180523
  Receipt Date: 20181026
  Transmission Date: 20190204
  Serious: Yes (Other)
  Sender: FDA-Public Use
  Company Number: FR-MERCK KGAA-2048287

PATIENT
  Age: 28 Year
  Sex: Female
  Weight: 53 kg

DRUGS (1)
  1. EUTHYROX [Suspect]
     Active Substance: LEVOTHYROXINE SODIUM
     Indication: AUTOIMMUNE THYROIDITIS
     Route: 048
     Dates: start: 201706, end: 201709

REACTIONS (14)
  - Impaired work ability [None]
  - Malaise [None]
  - Anxiety [None]
  - Palpitations [Recovering/Resolving]
  - Irritability [None]
  - Social problem [None]
  - Fatigue [Recovering/Resolving]
  - Food craving [None]
  - Blood thyroid stimulating hormone increased [Not Recovered/Not Resolved]
  - Hepatitis A antibody positive [None]
  - Weight increased [Recovering/Resolving]
  - Hyperhidrosis [Recovering/Resolving]
  - Affect lability [None]
  - Tachycardia [None]

NARRATIVE: CASE EVENT DATE: 2017
